FAERS Safety Report 18018069 (Version 2)
Quarter: 2020Q3

REPORT INFORMATION
  Report Type: Spontaneous
  Country: IT (occurrence: IT)
  Receive Date: 20200714
  Receipt Date: 20200723
  Transmission Date: 20201103
  Serious: Yes (Hospitalization)
  Sender: FDA-Public Use
  Company Number: IT-ASTRAZENECA-2020SE87316

PATIENT
  Age: 20 Year
  Sex: Female

DRUGS (3)
  1. HALOPERIDOL. [Suspect]
     Active Substance: HALOPERIDOL
     Indication: INTENTIONAL SELF-INJURY
     Dosage: 30.0MG ONCE/SINGLE ADMINISTRATION
     Route: 048
     Dates: start: 20200628, end: 20200628
  2. DELORAZEPAM [Suspect]
     Active Substance: DELORAZEPAM
     Indication: INTENTIONAL SELF-INJURY
     Dosage: 4.0MG ONCE/SINGLE ADMINISTRATION
     Route: 048
     Dates: start: 20200628, end: 20200628
  3. QUETIAPINE FUMARATE. [Suspect]
     Active Substance: QUETIAPINE FUMARATE
     Indication: INTENTIONAL SELF-INJURY
     Dosage: 3000.0MG ONCE/SINGLE ADMINISTRATION
     Route: 048
     Dates: start: 20200628, end: 20200628

REACTIONS (3)
  - Poisoning [Recovering/Resolving]
  - Tachycardia [Recovering/Resolving]
  - Drug abuse [Recovering/Resolving]

NARRATIVE: CASE EVENT DATE: 20200629
